FAERS Safety Report 18195444 (Version 1)
Quarter: 2020Q3

REPORT INFORMATION
  Report Type: Report from Study
  Country: FR (occurrence: FR)
  Receive Date: 20200826
  Receipt Date: 20200826
  Transmission Date: 20201103
  Serious: Yes (Other)
  Sender: FDA-Public Use
  Company Number: FR-ROCHE-1855791

PATIENT
  Age: 69 Year
  Sex: Male

DRUGS (19)
  1. OBINUTUZUMAB. [Suspect]
     Active Substance: OBINUTUZUMAB
     Indication: CHRONIC LYMPHOCYTIC LEUKAEMIA
     Dosage: DAY 1 OF CYCLE 1
     Route: 041
     Dates: start: 20160718
  2. OBINUTUZUMAB. [Suspect]
     Active Substance: OBINUTUZUMAB
     Dosage: CYCLE 6 DAY 1
     Route: 041
     Dates: start: 20161206
  3. IBRUTINIB [Suspect]
     Active Substance: IBRUTINIB
     Dosage: CYCLE 4, DAY 1
     Route: 048
     Dates: start: 20161011
  4. OBINUTUZUMAB. [Suspect]
     Active Substance: OBINUTUZUMAB
     Dosage: DAY 2 OF CYCLE 1
     Route: 041
     Dates: start: 20160719
  5. OBINUTUZUMAB. [Suspect]
     Active Substance: OBINUTUZUMAB
     Dosage: DAY 8 OF CYCLE 1
     Route: 041
     Dates: start: 20160725
  6. IBRUTINIB [Suspect]
     Active Substance: IBRUTINIB
     Dosage: CYCLE 1, DAY2
     Route: 048
     Dates: start: 20160719
  7. IBRUTINIB [Suspect]
     Active Substance: IBRUTINIB
     Dosage: CYCLE 1, DAY8
     Route: 048
     Dates: start: 20160725
  8. BACTRIM [Concomitant]
     Active Substance: SULFAMETHOXAZOLE\TRIMETHOPRIM
  9. OBINUTUZUMAB. [Suspect]
     Active Substance: OBINUTUZUMAB
     Dosage: CYCLE 2
     Route: 041
     Dates: start: 20160816
  10. IBRUTINIB [Suspect]
     Active Substance: IBRUTINIB
     Dosage: CYCLE 2
     Route: 048
     Dates: start: 20160816
  11. OBINUTUZUMAB. [Suspect]
     Active Substance: OBINUTUZUMAB
     Dosage: DAY 15 OF CYCLE 1
     Route: 041
     Dates: start: 20160801
  12. IBRUTINIB [Suspect]
     Active Substance: IBRUTINIB
     Dosage: CYCLE 1, DAY 15
     Route: 048
     Dates: start: 20160801
  13. OBINUTUZUMAB. [Suspect]
     Active Substance: OBINUTUZUMAB
     Dosage: CYCLE 4 DAY 1
     Route: 041
     Dates: start: 20161011
  14. IBRUTINIB [Suspect]
     Active Substance: IBRUTINIB
     Indication: CHRONIC LYMPHOCYTIC LEUKAEMIA
     Dosage: CYCLE 1, DAY1
     Route: 048
     Dates: start: 20160718
  15. OBINUTUZUMAB. [Suspect]
     Active Substance: OBINUTUZUMAB
     Dosage: CYCLE 3 DAY 1
     Route: 041
     Dates: start: 20160913
  16. OBINUTUZUMAB. [Suspect]
     Active Substance: OBINUTUZUMAB
     Dosage: CYCLE 5 DAY 1
     Route: 041
     Dates: start: 20161107
  17. IBRUTINIB [Suspect]
     Active Substance: IBRUTINIB
     Dosage: CYCLE 5, DAY 1
     Route: 048
     Dates: start: 20161107
  18. FOLINORAL [Concomitant]
     Active Substance: LEUCOVORIN CALCIUM
  19. IBRUTINIB [Suspect]
     Active Substance: IBRUTINIB
     Dosage: CYCLE 3, DAY 1
     Route: 048
     Dates: start: 20160913

REACTIONS (1)
  - Immune thrombocytopenia [Recovered/Resolved]

NARRATIVE: CASE EVENT DATE: 20161021
